FAERS Safety Report 19859931 (Version 1)
Quarter: 2021Q3

REPORT INFORMATION
  Report Type: Spontaneous
  Country: GB (occurrence: GB)
  Receive Date: 20210921
  Receipt Date: 20210921
  Transmission Date: 20211014
  Serious: Yes (Hospitalization)
  Sender: FDA-Public Use
  Company Number: GB-NOVOPROD-846521

PATIENT
  Sex: Female

DRUGS (1)
  1. OZEMPIC [Suspect]
     Active Substance: SEMAGLUTIDE
     Indication: DIABETES MELLITUS
     Dosage: 1 MG
     Route: 065
     Dates: start: 20210531

REACTIONS (5)
  - Nausea [Unknown]
  - Dysuria [Unknown]
  - Dehydration [Unknown]
  - Vomiting [Unknown]
  - Vomiting [Recovered/Resolved]
